FAERS Safety Report 5006992-4 (Version None)
Quarter: 2006Q2

REPORT INFORMATION
  Report Type: 
  Country: None (occurrence: None)
  Receive Date: 20060516
  Receipt Date: 20060426
  Transmission Date: 20061013
  Serious: Yes (Other)
  Sender: FDA-Public Use
  Company Number: PL200604004670

PATIENT
  Age: 1 Day
  Sex: 0

DRUGS (1)
  1. HUMULIN R [Suspect]
     Dosage: UNK, TRANSPLACENTAL
     Route: 064

REACTIONS (3)
  - DRUG EXPOSURE DURING PREGNANCY [None]
  - FOETAL MALFORMATION [None]
  - MATERNAL CONDITION AFFECTING FOETUS [None]
